FAERS Safety Report 5012093-1 (Version None)
Quarter: 2006Q2

REPORT INFORMATION
  Report Type: 
  Country: None (occurrence: None)
  Receive Date: 20060524
  Receipt Date: 20060512
  Transmission Date: 20061013
  Serious: Yes (Hospitalization)
  Sender: FDA-Public Use
  Company Number: GXKR2006CA02816

PATIENT
  Age: 44 Year
  Sex: Male

DRUGS (5)
  1. AZITHROMYCIN SANDOZ (NGX) (AZITHROMYCIN) TABLET [Suspect]
     Indication: LUNG INFECTION
     Dosage: SEE IMAGE
     Route: 048
     Dates: start: 20060511, end: 20060511
  2. AZITHROMYCIN SANDOZ (NGX) (AZITHROMYCIN) TABLET [Suspect]
     Indication: LUNG INFECTION
     Dosage: SEE IMAGE
     Route: 048
     Dates: start: 20060512, end: 20060516
  3. ACETAMINOPHEN [Concomitant]
  4. GRAVOL TAB [Concomitant]
  5. BENYLIN (DIPHENHYDRAMINE HYDROCHLORIDE) [Concomitant]

REACTIONS (2)
  - BLOOD URINE PRESENT [None]
  - DIARRHOEA [None]
